FAERS Safety Report 13030078 (Version 5)
Quarter: 2018Q2

REPORT INFORMATION
  Report Type: Report from Study
  Country: US (occurrence: US)
  Receive Date: 20161215
  Receipt Date: 20180614
  Transmission Date: 20180711
  Serious: Yes (Hospitalization, Other)
  Sender: FDA-Public Use
  Company Number: PHHO2016US017074

PATIENT
  Age: 69 Year
  Sex: Male
  Weight: 83.3 kg

DRUGS (14)
  1. TYLENOL [Concomitant]
     Active Substance: ACETAMINOPHEN
     Indication: PRODUCT USED FOR UNKNOWN INDICATION
     Route: 065
  2. LENALIDOMIDE [Suspect]
     Active Substance: LENALIDOMIDE
     Dosage: 15 MG, QD DAYS 1 TO 14 OF 21 (DOSE ESCALATION STUDY)
     Route: 048
     Dates: start: 20161129, end: 20161220
  3. BORTEZOMIB [Suspect]
     Active Substance: BORTEZOMIB
     Dosage: 1.0 MG/M2, SQ DAYS 1,4, 8 AND 11 OF 21 (DOSE ESCALATION STUDY)
     Route: 058
     Dates: start: 20161129, end: 20161220
  4. FARYDAK [Suspect]
     Active Substance: PANOBINOSTAT
     Dosage: 10 MG, DAYS 1,3,5,8,10 AND 12 OF 21 (DOSE ESCALATION STUDY)
     Route: 048
     Dates: start: 20161129, end: 20161220
  5. DEXAMETHASONE. [Suspect]
     Active Substance: DEXAMETHASONE
     Indication: PLASMA CELL MYELOMA
     Dosage: 20 MG, ORALLY ON 1, 2, 4, 5, 8, 9, 11 AND 12 OF 21 DAY OF AND AFTER VELCADE INFUSION
     Route: 048
     Dates: start: 20161101, end: 20161112
  6. DEXAMETHASONE. [Suspect]
     Active Substance: DEXAMETHASONE
     Dosage: 20 MG, ORALLY ON 1, 2, 4, 5, 8, 9, 11 AND 12 OF 21 DAY OF AND AFTER VELCADE INFUSION
     Route: 048
     Dates: start: 20161129, end: 20161220
  7. FARYDAK [Suspect]
     Active Substance: PANOBINOSTAT
     Indication: PLASMA CELL MYELOMA
     Dosage: 10 MG, DAYS 1,3,5,8,10 AND 12 OF 21 (DOSE ESCALATION STUDY)
     Route: 048
     Dates: start: 20161101, end: 20161112
  8. ASPIRINE [Concomitant]
     Active Substance: ASPIRIN
     Indication: PRODUCT USED FOR UNKNOWN INDICATION
     Route: 065
  9. VITAMIN B COMPLEX [Concomitant]
     Active Substance: CYANOCOBALAMIN\DEXPANTHENOL\NIACINAMIDE\PYRIDOXINE HYDROCHLORIDE\RIBOFLAVIN 5^-PHOSPHATE SODIUM\THIAMINE HYDROCHLORIDE\VITAMIN B COMPLEX
     Indication: PRODUCT USED FOR UNKNOWN INDICATION
     Route: 065
  10. CALCIUM [Concomitant]
     Active Substance: CALCIUM
     Indication: PRODUCT USED FOR UNKNOWN INDICATION
     Route: 065
  11. LENALIDOMIDE [Suspect]
     Active Substance: LENALIDOMIDE
     Indication: PLASMA CELL MYELOMA
     Dosage: 15 MG, QD DAYS 1 TO 14 OF 21 (DOSE ESCALATION STUDY)
     Route: 048
     Dates: start: 20161101, end: 20161114
  12. PROAIR HFA [Concomitant]
     Active Substance: ALBUTEROL SULFATE
     Indication: PRODUCT USED FOR UNKNOWN INDICATION
     Route: 065
  13. ACYCLOVIR. [Concomitant]
     Active Substance: ACYCLOVIR
     Indication: PRODUCT USED FOR UNKNOWN INDICATION
     Route: 065
  14. BORTEZOMIB [Suspect]
     Active Substance: BORTEZOMIB
     Indication: PLASMA CELL MYELOMA
     Dosage: 1.0 MG/M2, SQ DAYS 1,4, 8 AND 11 OF 21 (DOSE ESCALATION STUDY)
     Route: 058
     Dates: start: 20160111, end: 20161111

REACTIONS (8)
  - Spinal compression fracture [Recovering/Resolving]
  - Febrile neutropenia [Recovered/Resolved]
  - Rash [Recovered/Resolved]
  - Thrombocytopenia [Recovered/Resolved]
  - Thrombocytopenia [Recovered/Resolved]
  - Cough [Recovered/Resolved]
  - Chest pain [Recovered/Resolved]
  - Peripheral swelling [Recovered/Resolved]

NARRATIVE: CASE EVENT DATE: 20161116
